FAERS Safety Report 8421067-X (Version None)
Quarter: 2012Q2

REPORT INFORMATION
  Report Type: 
  Country: None (occurrence: None)
  Receive Date: 20120608
  Receipt Date: 20120530
  Transmission Date: 20120825
  Serious: Yes (Hospitalization)
  Sender: FDA-Public Use
  Company Number: BR-US-EMD SERONO, INC.-7069560

PATIENT
  Sex: Female

DRUGS (2)
  1. OTHER UNSPECIFIED MEDICATION [Concomitant]
     Indication: CONTRACEPTION
  2. REBIF [Suspect]
     Indication: RELAPSING-REMITTING MULTIPLE SCLEROSIS
     Route: 058
     Dates: start: 20090302

REACTIONS (2)
  - MULTIPLE SCLEROSIS RELAPSE [None]
  - HEMIPLEGIA [None]
